FAERS Safety Report 19642546 (Version 1)
Quarter: 2021Q3

REPORT INFORMATION
  Report Type: Spontaneous
  Country: CN (occurrence: CN)
  Receive Date: 20210730
  Receipt Date: 20210730
  Transmission Date: 20211014
  Serious: Yes (Hospitalization)
  Sender: FDA-Public Use
  Company Number: CN-PFIZER INC-202100910211

PATIENT
  Age: 7 Year
  Sex: Female
  Weight: 26 kg

DRUGS (4)
  1. DEXAMETHASONE. [Suspect]
     Active Substance: DEXAMETHASONE
     Dosage: 4.125 MG, 2X/DAY BID (8 MG/M2D) D1?7, D15?21
     Route: 048
     Dates: start: 20210701
  2. PEGASPARGASE [Suspect]
     Active Substance: PEGASPARGASE
     Dosage: 2000 (2000/M2/D) D3
  3. VINDESINE SULFATE [Suspect]
     Active Substance: VINDESINE SULFATE
     Indication: ACUTE LYMPHOCYTIC LEUKAEMIA
     Dosage: 3 MG, 1X/DAY (3 MG/M2/D) D1, D8, D15
     Route: 041
     Dates: start: 20210701, end: 20210701
  4. CYTARABINE. [Suspect]
     Active Substance: CYTARABINE
     Indication: ACUTE LYMPHOCYTIC LEUKAEMIA
     Dosage: 2 G, 1X/DAY 4 TIMES
     Route: 041
     Dates: start: 20210701, end: 20210702

REACTIONS (1)
  - Myelosuppression [Recovering/Resolving]

NARRATIVE: CASE EVENT DATE: 20210711
